FAERS Safety Report 9612389 (Version 4)
Quarter: 2013Q4

REPORT INFORMATION
  Report Type: Spontaneous
  Country: US (occurrence: US)
  Receive Date: 20131010
  Receipt Date: 20131209
  Transmission Date: 20140711
  Serious: No
  Sender: FDA-Public Use
  Company Number: US-PFIZER INC-2013289763

PATIENT
  Age: 55 Year
  Sex: Female
  Weight: 54 kg

DRUGS (7)
  1. LYRICA [Suspect]
     Indication: NEURALGIA
     Dosage: 50 MG, 2X/DAY
     Route: 048
     Dates: start: 20131005
  2. LYRICA [Suspect]
     Indication: SPINAL CORD INJURY
  3. LYRICA [Suspect]
     Indication: FIBROMYALGIA
  4. BENICAR [Concomitant]
     Indication: HYPERTENSION
     Dosage: 20 MG, 1X/DAY
  5. DILTIAZEM [Concomitant]
     Indication: HYPERTENSION
     Dosage: 90 MG, 2X/DAY
  6. PRAVASTATIN [Concomitant]
     Indication: BLOOD CHOLESTEROL ABNORMAL
     Dosage: 40 MG, 1X/DAY
  7. VICODIN [Concomitant]
     Indication: PAIN
     Dosage: UNK

REACTIONS (10)
  - Dizziness [Unknown]
  - Vision blurred [Recovered/Resolved]
  - Drug effect incomplete [Unknown]
  - Drug effect decreased [Unknown]
  - Myalgia [Unknown]
  - Hormone level abnormal [Unknown]
  - Therapeutic response unexpected [Unknown]
  - Skin lesion [Recovering/Resolving]
  - Thermal burn [Recovering/Resolving]
  - Blister [Recovering/Resolving]
